FAERS Safety Report 20742417 (Version 1)
Quarter: 2022Q2

REPORT INFORMATION
  Report Type: Other
  Country: CA (occurrence: CA)
  Receive Date: 20220424
  Receipt Date: 20220424
  Transmission Date: 20220721
  Serious: Yes (Other)
  Sender: FDA-Public Use
  Company Number: CA-APOTEX-2022AP006264

PATIENT
  Age: 60 Year
  Sex: Male

DRUGS (3)
  1. IMATINIB [Suspect]
     Active Substance: IMATINIB
     Indication: Chronic myeloid leukaemia
     Dosage: 400 MILLIGRAM, QD
     Route: 048
  2. CETIRIZINE HYDROCHLORIDE [Concomitant]
     Active Substance: CETIRIZINE HYDROCHLORIDE
     Indication: Product used for unknown indication
     Dosage: UNK UNK, QD
     Route: 065
  3. ALBUTEROL\GUAIFENESIN [Concomitant]
     Active Substance: ALBUTEROL\GUAIFENESIN
     Indication: Product used for unknown indication
     Dosage: UNK
     Route: 065

REACTIONS (8)
  - Chronic myeloid leukaemia recurrent [Unknown]
  - Gastric pH decreased [Unknown]
  - Pigmentation disorder [Unknown]
  - Product availability issue [Unknown]
  - Nausea [Unknown]
  - Arthralgia [Unknown]
  - Vomiting [Unknown]
  - Abdominal pain [Unknown]
